FAERS Safety Report 7471598-4 (Version None)
Quarter: 2011Q2

REPORT INFORMATION
  Report Type: 
  Country: None (occurrence: None)
  Receive Date: 20110511
  Receipt Date: 20110414
  Transmission Date: 20111010
  Serious: Yes (Hospitalization, Other)
  Sender: FDA-Public Use
  Company Number: US-BAYER-201030405NA

PATIENT
  Age: 44 Year
  Sex: Female
  Weight: 73 kg

DRUGS (6)
  1. NORCO [Concomitant]
  2. YASMIN [Suspect]
     Indication: PRODUCT USED FOR UNKNOWN INDICATION
     Dosage: UNK
     Route: 048
     Dates: start: 20080601, end: 20080801
  3. SYNTHROID [Concomitant]
     Indication: HYPOTHYROIDISM
  4. COUMADIN [Concomitant]
     Indication: PULMONARY EMBOLISM
  5. YAZ [Suspect]
     Indication: PRODUCT USED FOR UNKNOWN INDICATION
     Dosage: UNK
     Route: 048
     Dates: start: 20080601, end: 20080801
  6. LOVENOX [Concomitant]
     Indication: PULMONARY EMBOLISM

REACTIONS (6)
  - MENSTRUAL DISORDER [None]
  - PULMONARY THROMBOSIS [None]
  - CHEST PAIN [None]
  - PULMONARY EMBOLISM [None]
  - DYSPNOEA [None]
  - MENTAL DISORDER [None]
